FAERS Safety Report 4806500-4 (Version None)
Quarter: 2005Q4

REPORT INFORMATION
  Report Type: 
  Country: None (occurrence: None)
  Receive Date: 20051019
  Receipt Date: 20051010
  Transmission Date: 20060501
  Serious: Yes (Disabling, Other)
  Sender: FDA-Public Use
  Company Number: 2005140466

PATIENT
  Age: 79 Year
  Sex: Male
  Weight: 76.2043 kg

DRUGS (6)
  1. LIPITOR [Suspect]
     Indication: BLOOD CHOLESTEROL
     Dosage: 20 MG (20 MG, 1 IN 1 D), ORAL
     Route: 048
  2. INSULIN [Concomitant]
  3. ACTOS [Concomitant]
  4. VASOTEC [Concomitant]
  5. CLONIDINE [Concomitant]
  6. ASPIRIN [Concomitant]

REACTIONS (4)
  - BLINDNESS UNILATERAL [None]
  - CATARACT [None]
  - MACULAR DEGENERATION [None]
  - RETINAL HAEMORRHAGE [None]
